FAERS Safety Report 16191662 (Version 2)
Quarter: 2019Q2

REPORT INFORMATION
  Report Type: Spontaneous
  Country: US (occurrence: US)
  Receive Date: 20190412
  Receipt Date: 20190514
  Transmission Date: 20190711
  Serious: No
  Sender: FDA-Public Use
  Company Number: US-GLAXOSMITHKLINE-US2019063128

PATIENT
  Sex: Female
  Weight: 186 kg

DRUGS (3)
  1. SHINGRIX [Suspect]
     Active Substance: RECOMBINANT VARICELLA ZOSTER VIRUS (VZV) GLYCOPROTEIN E
     Indication: PROPHYLAXIS
     Route: 030
     Dates: start: 20190302, end: 20190302
  2. ANTIHISTAMINE [Suspect]
     Active Substance: ANTIHISTAMINES NOS
  3. LAMISIL [Suspect]
     Active Substance: TERBINAFINE HYDROCHLORIDE

REACTIONS (7)
  - Injection site rash [Recovering/Resolving]
  - Rash [Recovered/Resolved]
  - Fatigue [Unknown]
  - Extensive swelling of vaccinated limb [Recovering/Resolving]
  - Injection site discolouration [Unknown]
  - Somnolence [Unknown]
  - Injection site warmth [Recovering/Resolving]
